FAERS Safety Report 7999001-6 (Version None)
Quarter: 2011Q4

REPORT INFORMATION
  Report Type: 
  Country: None (occurrence: None)
  Receive Date: 20111221
  Receipt Date: 20111214
  Transmission Date: 20120403
  Serious: Yes (Hospitalization)
  Sender: FDA-Public Use
  Company Number: US-ROXANE LABORATORIES, INC.-2011-RO-01810RO

PATIENT
  Age: 89 Year
  Sex: Male

DRUGS (10)
  1. OMEPRAZOLE [Suspect]
     Dosage: 20 MG
  2. METOPROLOL TARTRATE [Suspect]
     Dosage: 50 MG
  3. VALACYCLOVIR HYDROCHLORIDE [Suspect]
     Indication: HERPES ZOSTER OPHTHALMIC
     Dosage: 3 G
     Route: 048
  4. LISINOPRIL [Suspect]
     Dosage: 2.5 MG
  5. DONEPEZIL HYDROCHLORIDE [Suspect]
     Dosage: 10 MG
  6. SOLIFENACIN SUCCINATE [Suspect]
     Dosage: 10 MG
  7. FLUOXETINE [Suspect]
     Dosage: 20 MG
  8. LEVOTHYROXINE SODIUM [Suspect]
     Dosage: 88 MCG
  9. SIMVASTATIN [Suspect]
     Dosage: 20 MG
  10. SODIUM BICARBONATE [Suspect]
     Dosage: 1300 MG

REACTIONS (1)
  - NEUROTOXICITY [None]
